FAERS Safety Report 7097404-8 (Version None)
Quarter: 2010Q4

REPORT INFORMATION
  Report Type: 
  Country: None (occurrence: None)
  Receive Date: 20101111
  Receipt Date: 20101029
  Transmission Date: 20110411
  Serious: Yes (Hospitalization)
  Sender: FDA-Public Use
  Company Number: BR-GENENTECH-308512

PATIENT
  Sex: Male

DRUGS (1)
  1. RITUXAN [Suspect]
     Indication: MULTIPLE SCLEROSIS
     Dosage: 1 G, Q15D
     Route: 064

REACTIONS (2)
  - JAUNDICE [None]
  - WEIGHT DECREASED [None]
